FAERS Safety Report 24303442 (Version 1)
Quarter: 2024Q3

REPORT INFORMATION
  Report Type: Spontaneous
  Country: US (occurrence: None)
  Receive Date: 20240909
  Receipt Date: 20240909
  Transmission Date: 20241017
  Serious: Yes (Other)
  Sender: Public
  Company Number: None

PATIENT
  Sex: Male

DRUGS (3)
  1. DEXAMETHASONE\NEOMYCIN\POLYMYXIN B [Suspect]
     Active Substance: DEXAMETHASONE\NEOMYCIN\POLYMYXIN B
     Indication: Eye pain
     Dosage: 1 DROP 3 TIMES A DAY OPHTHALMIC?FREQUENCY : 3 TIMES A DAY;?
     Route: 047
     Dates: start: 20240904, end: 20240905
  2. PROPRANOLOL [Concomitant]
     Active Substance: PROPRANOLOL HYDROCHLORIDE
  3. ALPRAZOLAM [Concomitant]
     Active Substance: ALPRAZOLAM

REACTIONS (10)
  - Visual impairment [None]
  - Visual impairment [None]
  - Vision blurred [None]
  - Headache [None]
  - Asthenia [None]
  - Eye irritation [None]
  - Eye pain [None]
  - Impaired driving ability [None]
  - Impaired work ability [None]
  - Insurance issue [None]

NARRATIVE: CASE EVENT DATE: 20240904
